FAERS Safety Report 8201167-X (Version None)
Quarter: 2012Q1

REPORT INFORMATION
  Report Type: 
  Country: None (occurrence: None)
  Receive Date: 20120312
  Receipt Date: 20120305
  Transmission Date: 20120608
  Serious: Yes (Other)
  Sender: FDA-Public Use
  Company Number: PHHY2012AU009663

PATIENT
  Sex: Female
  Weight: 55 kg

DRUGS (3)
  1. VITAMIN D [Concomitant]
     Indication: OSTEOPOROSIS
     Dosage: 1000 MG, UNK
     Route: 048
     Dates: start: 20100101
  2. ZOLEDRONOC ACID [Suspect]
     Indication: OSTEOPOROSIS
     Dosage: 5 MG, YEARLY
     Route: 042
     Dates: start: 20110119
  3. LIPITOR [Concomitant]
     Indication: LIPIDS INCREASED
     Dosage: 10 MG, UNK
     Dates: start: 20000101

REACTIONS (4)
  - INFLUENZA LIKE ILLNESS [None]
  - CHEST PAIN [None]
  - VOMITING [None]
  - HEADACHE [None]
